FAERS Safety Report 5833034-0 (Version None)
Quarter: 2008Q3

REPORT INFORMATION
  Report Type: 
  Country: None (occurrence: None)
  Receive Date: 20080805
  Receipt Date: 20080728
  Transmission Date: 20090109
  Serious: Yes (Other)
  Sender: FDA-Public Use
  Company Number: US-ASTRAZENECA-2006UW21200

PATIENT
  Age: 19824 Day
  Sex: Male
  Weight: 102.1 kg

DRUGS (4)
  1. SEROQUEL [Suspect]
     Indication: BIPOLAR DISORDER
     Dosage: 400MG - 600MG
     Route: 048
     Dates: start: 20040110
  2. SEROQUEL [Suspect]
     Indication: DEPRESSION
     Dosage: 400MG - 600MG
     Route: 048
     Dates: start: 20040110
  3. SEROQUEL [Suspect]
     Route: 048
     Dates: start: 20041201
  4. SEROQUEL [Suspect]
     Route: 048
     Dates: start: 20041201

REACTIONS (5)
  - BACK DISORDER [None]
  - DIABETES MELLITUS [None]
  - LIMB DISCOMFORT [None]
  - MENTAL DISORDER [None]
  - SURGERY [None]
